FAERS Safety Report 17123529 (Version 1)
Quarter: 2019Q4

REPORT INFORMATION
  Report Type: Spontaneous
  Country: FR (occurrence: FR)
  Receive Date: 20191206
  Receipt Date: 20191206
  Transmission Date: 20200122
  Serious: Yes (Hospitalization)
  Sender: FDA-Public Use
  Company Number: FR-009507513-1912FRA001455

PATIENT
  Age: 78 Year
  Sex: Female
  Weight: 83 kg

DRUGS (2)
  1. CEFEPIME [Suspect]
     Active Substance: CEFEPIME HYDROCHLORIDE
     Indication: ARTHRITIS INFECTIVE
     Dosage: 6 G, ONCE DAILY
     Route: 042
     Dates: start: 20191107, end: 20191112
  2. CUBICIN [Suspect]
     Active Substance: DAPTOMYCIN
     Indication: ARTHRITIS INFECTIVE
     Dosage: 1000 MG (MILLIGRAM), ONCE DAILY
     Route: 042
     Dates: start: 20191107, end: 20191114

REACTIONS (1)
  - Status epilepticus [Recovered/Resolved]

NARRATIVE: CASE EVENT DATE: 20191110
